FAERS Safety Report 6725156-7 (Version None)
Quarter: 2010Q2

REPORT INFORMATION
  Report Type: 
  Country: None (occurrence: None)
  Receive Date: 20100514
  Receipt Date: 20100507
  Transmission Date: 20101027
  Serious: Yes (Disabling)
  Sender: FDA-Public Use
  Company Number: GB-ASTRAZENECA-2010SE21074

PATIENT
  Age: 70 Year
  Sex: Male

DRUGS (8)
  1. MEROPENEM [Suspect]
     Route: 042
  2. ASPIRIN [Interacting]
  3. CLOPIDOGREL [Interacting]
  4. TEICOPLANIN [Interacting]
     Route: 030
  5. CIPROFLOXACIN [Interacting]
     Route: 048
  6. METRONIDAZOLE [Interacting]
     Route: 048
  7. METRONIDAZOLE [Interacting]
     Route: 048
  8. WARFARIN SODIUM [Interacting]

REACTIONS (3)
  - DRUG INTERACTION [None]
  - HYPHAEMA [None]
  - INTRAOCULAR PRESSURE INCREASED [None]
